FAERS Safety Report 15021036 (Version 17)
Quarter: 2021Q4

REPORT INFORMATION
  Report Type: Report from Study
  Country: NO (occurrence: NO)
  Receive Date: 20180618
  Receipt Date: 20211201
  Transmission Date: 20220303
  Serious: Yes (Hospitalization, Other)
  Sender: FDA-Public Use
  Company Number: PHHY2017NO163028

PATIENT
  Age: 44 Year
  Sex: Female
  Weight: 65 kg

DRUGS (11)
  1. TAFINLAR [Suspect]
     Active Substance: DABRAFENIB MESYLATE
     Indication: Malignant melanoma
     Dosage: 150 MG, UNK
     Route: 048
     Dates: start: 20170823, end: 20180507
  2. TAFINLAR [Suspect]
     Active Substance: DABRAFENIB MESYLATE
     Dosage: 75 MG, UNK
     Route: 048
     Dates: start: 20180508, end: 20180511
  3. TAFINLAR [Suspect]
     Active Substance: DABRAFENIB MESYLATE
     Dosage: 150+75 MG
     Route: 048
     Dates: start: 20180512, end: 20180620
  4. TAFINLAR [Suspect]
     Active Substance: DABRAFENIB MESYLATE
     Dosage: 150+75 OT, UNK
     Route: 048
     Dates: start: 20180702, end: 20180813
  5. TAFINLAR [Suspect]
     Active Substance: DABRAFENIB MESYLATE
     Dosage: 75 OT, UNK
     Route: 048
     Dates: start: 20180828, end: 20180902
  6. TAFINLAR [Suspect]
     Active Substance: DABRAFENIB MESYLATE
     Dosage: 150+75 OT, UNK
     Route: 048
     Dates: start: 20180903, end: 20180910
  7. TAFINLAR [Suspect]
     Active Substance: DABRAFENIB MESYLATE
     Dosage: 150 OT, UNK
     Route: 048
     Dates: start: 20180911, end: 20190208
  8. TAFINLAR [Suspect]
     Active Substance: DABRAFENIB MESYLATE
     Dosage: 150 OT
     Route: 048
     Dates: start: 20190215, end: 20190307
  9. TAFINLAR [Suspect]
     Active Substance: DABRAFENIB MESYLATE
     Dosage: 150 OT, UNK
     Route: 048
     Dates: start: 20190215, end: 20190404
  10. TRAMETINIB [Suspect]
     Active Substance: TRAMETINIB
     Indication: Malignant melanoma
     Dosage: 2 MG
     Route: 048
     Dates: start: 20170823, end: 20180606
  11. TRAMETINIB [Suspect]
     Active Substance: TRAMETINIB
     Dosage: UNK (DOSE 1 OT)
     Route: 048
     Dates: start: 20190215, end: 20190307

REACTIONS (28)
  - Tumour associated fever [Recovered/Resolved]
  - C-reactive protein increased [Recovered/Resolved]
  - Sinus bradycardia [Recovered/Resolved]
  - Dizziness [Recovered/Resolved]
  - Nausea [Recovered/Resolved]
  - Pyrexia [Recovered/Resolved]
  - Diarrhoea [Recovered/Resolved]
  - Vomiting [Recovered/Resolved]
  - Dermatitis exfoliative [Recovered/Resolved]
  - Erythema nodosum [Recovered/Resolved]
  - Actinic keratosis [Recovered/Resolved]
  - Seborrhoeic keratosis [Recovered/Resolved]
  - Actinic keratosis [Recovered/Resolved]
  - Arthralgia [Recovered/Resolved]
  - Arthralgia [Recovered/Resolved]
  - Joint stiffness [Recovered/Resolved]
  - Rash maculo-papular [Recovered/Resolved]
  - Nausea [Recovered/Resolved]
  - Rash [Recovered/Resolved]
  - Headache [Recovered/Resolved]
  - Myalgia [Recovered/Resolved]
  - Pain in extremity [Recovered/Resolved]
  - Palmar-plantar erythrodysaesthesia syndrome [Recovered/Resolved]
  - Pyrexia [Recovered/Resolved]
  - Dizziness [Recovered/Resolved]
  - Rash maculo-papular [Recovered/Resolved]
  - Nausea [Recovered/Resolved]
  - Oedema peripheral [Recovered/Resolved]

NARRATIVE: CASE EVENT DATE: 20170823
